FAERS Safety Report 11891677 (Version 1)
Quarter: 2016Q1

REPORT INFORMATION
  Report Type: Spontaneous
  Country: US (occurrence: US)
  Receive Date: 20160106
  Receipt Date: 20160106
  Transmission Date: 20160526
  Serious: No
  Sender: FDA-Public Use
  Company Number: US-APOTEX-2015AP009199

PATIENT
  Sex: Female

DRUGS (1)
  1. TIZANIDINE. [Suspect]
     Active Substance: TIZANIDINE
     Indication: RELAXATION THERAPY
     Dosage: 4 TABLET DAILY

REACTIONS (2)
  - Product substitution issue [Unknown]
  - Drug ineffective [Unknown]
